FAERS Safety Report 4487898-6 (Version None)
Quarter: 2004Q4

REPORT INFORMATION
  Report Type: 
  Country: None (occurrence: None)
  Receive Date: 20041028
  Receipt Date: 20041005
  Transmission Date: 20050328
  Serious: Yes (Hospitalization, Other)
  Sender: FDA-Public Use
  Company Number: PHEH2004US10734

PATIENT
  Age: 47 Year
  Sex: Female

DRUGS (3)
  1. VIVELLE-DOT [Suspect]
     Indication: HORMONE REPLACEMENT THERAPY
     Dosage: .1 MG, TWICE WEEKLY
     Route: 062
     Dates: start: 20000301, end: 20041007
  2. VIVELLE-DOT [Suspect]
     Dosage: 0.0375MG, TWICE WEEKLY
     Route: 062
     Dates: start: 19960101
  3. MULTIVITAMIN [Concomitant]

REACTIONS (5)
  - ANAEMIA [None]
  - CROHN'S DISEASE [None]
  - GASTROINTESTINAL HAEMORRHAGE [None]
  - INTESTINAL ULCER [None]
  - POLYP [None]
